FAERS Safety Report 23320191 (Version 1)
Quarter: 2023Q4

REPORT INFORMATION
  Report Type: Spontaneous
  Country: US (occurrence: None)
  Receive Date: 20231219
  Receipt Date: 20231219
  Transmission Date: 20240110
  Serious: Yes (Life-Threatening)
  Sender: FDA-Public Use
  Company Number: None

PATIENT
  Age: 6 Year
  Sex: Female
  Weight: 23 kg

DRUGS (4)
  1. VOXELOTOR [Suspect]
     Active Substance: VOXELOTOR
     Indication: Sickle cell disease
     Dosage: FREQUENCY : DAILY;?
     Route: 048
     Dates: start: 20230710
  2. HYDROXYUREA [Concomitant]
     Active Substance: HYDROXYUREA
  3. IBUPROFEN [Concomitant]
     Active Substance: IBUPROFEN
  4. HYCET [Concomitant]
     Active Substance: ACETAMINOPHEN\HYDROCODONE BITARTRATE

REACTIONS (4)
  - Sickle cell anaemia with crisis [None]
  - Upper respiratory tract infection [None]
  - Chest discomfort [None]
  - Hypoxia [None]

NARRATIVE: CASE EVENT DATE: 20231112
